FAERS Safety Report 10128411 (Version 2)
Quarter: 2014Q2

REPORT INFORMATION
  Report Type: Spontaneous
  Country: US (occurrence: US)
  Receive Date: 20140428
  Receipt Date: 20140428
  Transmission Date: 20141212
  Serious: Yes (Death, Hospitalization, Other)
  Sender: FDA-Public Use
  Company Number: US-009507513-1402USA010964

PATIENT
  Age: 4 Year
  Sex: Female

DRUGS (2)
  1. VARIVAX [Suspect]
     Indication: PROPHYLAXIS
     Route: 058
     Dates: start: 200903, end: 200903
  2. DEXAMETHASONE [Suspect]
     Indication: ACUTE LYMPHOCYTIC LEUKAEMIA
     Dosage: 23 MG/DAY, PREDNISONE EQUIVALENT
     Route: 042

REACTIONS (3)
  - Varicella post vaccine [Fatal]
  - Multi-organ failure [Fatal]
  - Medication error [Unknown]
